FAERS Safety Report 15639409 (Version 1)
Quarter: 2018Q4

REPORT INFORMATION
  Report Type: Spontaneous
  Country: CA (occurrence: CA)
  Receive Date: 20181120
  Receipt Date: 20181120
  Transmission Date: 20190205
  Serious: Yes (Life-Threatening, Hospitalization, Other)
  Sender: FDA-Public Use
  Company Number: CA-PFIZER INC-2017077221

PATIENT
  Age: 3 Year
  Sex: Male
  Weight: 15 kg

DRUGS (5)
  1. MORPHINE SULFATE. [Suspect]
     Active Substance: MORPHINE SULFATE
     Dosage: 15 MG, 2X/DAY (DAY 1, 11:00 A.M. AND 5:45 P.M.)
     Route: 048
  2. MORPHINE SULFATE. [Suspect]
     Active Substance: MORPHINE SULFATE
     Indication: PAIN
     Dosage: 3 MG, 3X/DAY (THREE DOSES ON DAY 0, 0.2 MG/KG PER DOSE, 2:00 P.M., 6:00 P.M. AND 10:30 P.M.)
     Route: 048
  3. MORPHINE SULFATE. [Suspect]
     Active Substance: MORPHINE SULFATE
     Indication: ANALGESIC THERAPY
     Dosage: 3 MG, 2X/DAY (DAY 1, 2:30 A.M. AND 6:30 A.M.)
     Route: 048
  4. ACETAMINOPHEN. [Concomitant]
     Active Substance: ACETAMINOPHEN
     Indication: PAIN
     Dosage: 225 MG, 3X/DAY (15 MG/KG PER DOSE, DAY 0, 2:00 P.M., 6:00 P.M. AND 10:30 P.M.)
     Route: 048
  5. ACETAMINOPHEN. [Concomitant]
     Active Substance: ACETAMINOPHEN
     Dosage: 225 MG, 2X/DAY (DAY 1, 2:30 A.M. AND 6:30 A.M.)
     Route: 048

REACTIONS (5)
  - Respiratory depression [Recovered/Resolved]
  - Toxicity to various agents [Recovering/Resolving]
  - Somnolence [Recovered/Resolved]
  - Product dispensing error [Recovering/Resolving]
  - Tachycardia [Recovered/Resolved]
